FAERS Safety Report 19737852 (Version 1)
Quarter: 2021Q3

REPORT INFORMATION
  Report Type: Spontaneous
  Country: CA (occurrence: CA)
  Receive Date: 20210824
  Receipt Date: 20210824
  Transmission Date: 20211014
  Serious: Yes (Life-Threatening)
  Sender: FDA-Public Use
  Company Number: CA-TELIGENT, INC-20210800079

PATIENT

DRUGS (1)
  1. LIDOCAINE UNSPECIFIED [Suspect]
     Active Substance: LIDOCAINE
     Indication: PAIN
     Dosage: APPROXIMATELY 2000 MG OVER 20 MINS
     Route: 042

REACTIONS (2)
  - Incorrect drug administration rate [Unknown]
  - Local anaesthetic systemic toxicity [Recovered/Resolved]
